FAERS Safety Report 9559968 (Version 1)
Quarter: 2013Q3

REPORT INFORMATION
  Report Type: Spontaneous
  Country: AU (occurrence: None)
  Receive Date: 20130925
  Receipt Date: 20130925
  Transmission Date: 20140515
  Serious: Yes (Other)
  Sender: FDA-Public Use
  Company Number: 2013AP008204

PATIENT
  Age: 57 Year
  Sex: Female

DRUGS (1)
  1. SOTALOL [Suspect]

REACTIONS (2)
  - Cardiac fibrillation [None]
  - Nausea [None]
